FAERS Safety Report 18633397 (Version 1)
Quarter: 2020Q4

REPORT INFORMATION
  Report Type: Spontaneous
  Country: JP (occurrence: JP)
  Receive Date: 20201218
  Receipt Date: 20201218
  Transmission Date: 20210114
  Serious: Yes (Hospitalization, Other)
  Sender: FDA-Public Use
  Company Number: JP-PFIZER INC-2016160076

PATIENT
  Age: 35 Year
  Sex: Female
  Weight: 55 kg

DRUGS (4)
  1. PROGRAF [Suspect]
     Active Substance: TACROLIMUS
     Indication: RHEUMATOID ARTHRITIS
     Dosage: 1.5 MG, ONCE DAILY
     Route: 048
  2. ENBREL [Suspect]
     Active Substance: ETANERCEPT
     Indication: RHEUMATOID ARTHRITIS
     Dosage: 50 MG, WEEKLY
     Route: 058
     Dates: start: 20130607, end: 20160311
  3. FOLIAMIN [Concomitant]
     Active Substance: FOLIC ACID
     Dosage: 5 MG, WEEKLY
     Route: 048
     Dates: start: 20160215
  4. METHOTREXATE SODIUM. [Suspect]
     Active Substance: METHOTREXATE SODIUM
     Indication: RHEUMATOID ARTHRITIS
     Dosage: 8 MG, ONCE WEEKLY
     Route: 048
     Dates: start: 20160215

REACTIONS (21)
  - Blood uric acid increased [Unknown]
  - Blood albumin decreased [Unknown]
  - Bacterial test positive [Unknown]
  - Blood lactate dehydrogenase decreased [Unknown]
  - Cellulitis [Recovered/Resolved]
  - Mean cell volume decreased [Unknown]
  - Lymphocyte percentage decreased [Unknown]
  - Monocyte percentage increased [Unknown]
  - Blood urea decreased [Unknown]
  - Mean cell haemoglobin concentration decreased [Unknown]
  - Immunosuppression [Unknown]
  - Blood bilirubin decreased [Unknown]
  - Band neutrophil percentage decreased [Unknown]
  - Blood cholesterol decreased [Unknown]
  - Haemoglobin decreased [Unknown]
  - White blood cells urine positive [Unknown]
  - White blood cell count decreased [Unknown]
  - Eosinophil count increased [Unknown]
  - Mean cell haemoglobin decreased [Unknown]
  - Neutrophil percentage increased [Unknown]
  - Blood urine present [Unknown]

NARRATIVE: CASE EVENT DATE: 20151216
